FAERS Safety Report 7711733-3 (Version None)
Quarter: 2011Q3

REPORT INFORMATION
  Report Type: 
  Country: None (occurrence: None)
  Receive Date: 20110826
  Receipt Date: 20110815
  Transmission Date: 20111222
  Serious: Yes (Hospitalization)
  Sender: FDA-Public Use
  Company Number: GB-JNJFOC-20110606762

PATIENT
  Age: 23 Year
  Sex: Male

DRUGS (5)
  1. DIAZEPAM [Concomitant]
     Indication: DRUG DEPENDENCE
  2. TRAMADOL HYDROCHLORIDE [Suspect]
     Indication: BACK PAIN
     Route: 065
     Dates: start: 20110301, end: 20110520
  3. HEROIN [Concomitant]
     Route: 065
     Dates: end: 20110201
  4. CANNABIS [Concomitant]
     Route: 065
     Dates: end: 20110201
  5. METHADONE HCL [Concomitant]
     Indication: DRUG DEPENDENCE
     Dates: end: 20110201

REACTIONS (3)
  - HALLUCINATION, AUDITORY [None]
  - HALLUCINATION, VISUAL [None]
  - PSYCHOTIC DISORDER [None]
